FAERS Safety Report 4927121-9 (Version None)
Quarter: 2006Q1

REPORT INFORMATION
  Report Type: 
  Country: None (occurrence: None)
  Receive Date: 20060228
  Receipt Date: 20060222
  Transmission Date: 20060701
  Serious: Yes (Death, Other)
  Sender: FDA-Public Use
  Company Number: PHBS2006JP02958

PATIENT
  Age: 28 Year
  Sex: Male

DRUGS (1)
  1. NEORAL [Suspect]
     Route: 065

REACTIONS (7)
  - ADENOVIRAL HAEMORRHAGIC CYSTITIS [None]
  - CANDIDA SEPSIS [None]
  - CARDIAC FAILURE CONGESTIVE [None]
  - ENDOTOXIC SHOCK [None]
  - HYDRONEPHROSIS [None]
  - PULMONARY ALVEOLAR HAEMORRHAGE [None]
  - RENAL FAILURE [None]
